FAERS Safety Report 8457833-4 (Version None)
Quarter: 2012Q2

REPORT INFORMATION
  Report Type: 
  Country: None (occurrence: None)
  Receive Date: 20120622
  Receipt Date: 20120611
  Transmission Date: 20120825
  Serious: Yes (Other)
  Sender: FDA-Public Use
  Company Number: US-ACCORD-013719

PATIENT
  Age: 56 Year
  Sex: Female

DRUGS (2)
  1. LETROZOLE [Suspect]
     Indication: BREAST CANCER
     Dates: end: 20111115
  2. ANASTROZOLE [Suspect]
     Indication: BREAST CANCER
     Dates: start: 20110820

REACTIONS (3)
  - SUICIDAL IDEATION [None]
  - MOOD SWINGS [None]
  - DEPRESSED MOOD [None]
